FAERS Safety Report 9825307 (Version 1)
Quarter: 2014Q1

REPORT INFORMATION
  Report Type: Spontaneous
  Country: US (occurrence: None)
  Receive Date: 20140115
  Receipt Date: 20140115
  Transmission Date: 20141002
  Serious: Yes (Hospitalization)
  Sender: FDA-Public Use
  Company Number: None

PATIENT
  Age: 91 Year
  Sex: Female
  Weight: 65 kg

DRUGS (10)
  1. WARFARIN [Suspect]
     Indication: ATRIAL FIBRILLATION
     Dosage: PRIOR TO ADMISSION
     Route: 048
  2. ALLOPURINOL [Concomitant]
  3. ASPIRIN [Concomitant]
  4. CALCIUM [Concomitant]
  5. CHOLECALCIFEROL [Concomitant]
  6. MULTIVITAMIN [Concomitant]
  7. FAMOTIDINE [Concomitant]
  8. FUROSEMIDE [Concomitant]
  9. LEVOTHYROXINE [Concomitant]
  10. OMEGA 3 FATTY ACID [Concomitant]

REACTIONS (2)
  - Haematuria [None]
  - International normalised ratio increased [None]
